FAERS Safety Report 11884143 (Version 1)
Quarter: 2015Q4

REPORT INFORMATION
  Report Type: Spontaneous
  Country: US (occurrence: None)
  Receive Date: 20151231
  Receipt Date: 20151231
  Transmission Date: 20160305
  Serious: Yes (Hospitalization)
  Sender: FDA-Public Use
  Company Number: None

PATIENT
  Age: 45 Year
  Sex: Female
  Weight: 125 kg

DRUGS (10)
  1. VITAMIN D (CHOLECALCIFEDROL) [Concomitant]
  2. DEPAKOTE ER [Concomitant]
     Active Substance: DIVALPROEX SODIUM
  3. LASIX [Concomitant]
     Active Substance: FUROSEMIDE
  4. NYSTATIN (MYCOSTATIN) [Concomitant]
  5. OMEPRAZOLE (PRILOSEC) [Concomitant]
  6. WARFARIN [Suspect]
     Active Substance: WARFARIN
     Indication: FACTOR V LEIDEN MUTATION
     Dosage: LIFE LONG
     Route: 048
  7. DARBEPOETIN ALFA-POLYSORBAETE (ARANESP) [Concomitant]
  8. DIPHENHYDRAMINE (BENADYL) [Concomitant]
  9. ALBUTEROL (PROVENTIL) [Concomitant]
  10. PRAZOSIN (MINIPRESS) [Concomitant]

REACTIONS (3)
  - Haemoglobin decreased [None]
  - Renal haematoma [None]
  - International normalised ratio abnormal [None]

NARRATIVE: CASE EVENT DATE: 20151023
